FAERS Safety Report 8844188 (Version 2)
Quarter: 2012Q4

REPORT INFORMATION
  Report Type: 
  Country: US (occurrence: US)
  Receive Date: 20121016
  Receipt Date: 20121226
  Transmission Date: 20130627
  Serious: Yes (Other)
  Sender: FDA-Public Use
  Company Number: US-PFIZER INC-2012252052

PATIENT
  Sex: Male
  Weight: 2.13 kg

DRUGS (13)
  1. RAPAMUNE [Suspect]
     Indication: CARDIAC TRANSPLANT
     Dosage: 2 mg every other day alternating with 1mg every other day
     Route: 064
     Dates: end: 20110218
  2. RAPAMUNE [Suspect]
     Dosage: 2 mg, 1x/day
     Route: 064
     Dates: start: 20110218, end: 201105
  3. RAPAMUNE [Suspect]
     Dosage: 3 mg, 1x/day
     Route: 064
     Dates: start: 201105, end: 20110619
  4. CYCLOSPORINE [Concomitant]
     Indication: TRANSPLANT
     Dosage: 50 mg, 2x/day
     Route: 064
     Dates: end: 20110218
  5. CYCLOSPORINE [Concomitant]
     Dosage: 75mg AM, 50mg PM
     Route: 064
     Dates: start: 20110218, end: 20110330
  6. CYCLOSPORINE [Concomitant]
     Dosage: 75 mg, 2x/day
     Route: 064
     Dates: start: 20110330, end: 201105
  7. CYCLOSPORINE [Concomitant]
     Dosage: 100 mg, 2x/day
     Route: 064
     Dates: start: 201105
  8. PREDNISONE [Concomitant]
     Indication: TRANSPLANT
     Dosage: 10 mg, 1x/day
     Route: 064
  9. AMLODIPINE [Concomitant]
     Indication: HYPERTENSION
     Dosage: 10 mg, 1x/day
     Route: 064
  10. ENALAPRIL [Concomitant]
     Dosage: 20 mg, 1x/day
     Route: 064
     Dates: end: 201112
  11. ATORVASTATIN CALCIUM [Concomitant]
     Dosage: 40 mg, 1x/day
     Route: 064
     Dates: end: 201112
  12. FAMOTIDINE [Concomitant]
     Dosage: 20 mg, 1x/day
     Route: 064
  13. SULFAMETHOXYPYRAZINE/TRIMETHOPRIM [Concomitant]
     Dosage: UNK
     Route: 064
     Dates: end: 201112

REACTIONS (2)
  - Maternal exposure timing unspecified [Unknown]
  - Cerebral haemorrhage [Unknown]
